FAERS Safety Report 4602252-1 (Version None)
Quarter: 2005Q2

REPORT INFORMATION
  Report Type: 
  Country: None (occurrence: None)
  Receive Date: 20050215
  Receipt Date: 20041112
  Transmission Date: 20051028
  Serious: Yes (Hospitalization)
  Sender: FDA-Public Use
  Company Number: 383005

PATIENT
  Age: 43 Year
  Sex: Female

DRUGS (2)
  1. PEGASYS [Suspect]
     Indication: DRUG USE FOR UNKNOWN INDICATION
     Dates: start: 20040725
  2. COPEGUS [Suspect]
     Indication: DRUG USE FOR UNKNOWN INDICATION
     Dates: start: 20040725

REACTIONS (11)
  - ARTHRALGIA [None]
  - CHEST PAIN [None]
  - FATIGUE [None]
  - HEADACHE [None]
  - INJECTION SITE INFECTION [None]
  - INSOMNIA [None]
  - MYALGIA [None]
  - NASAL DISCOMFORT [None]
  - PULMONARY CONGESTION [None]
  - PUNCTURE SITE INFECTION [None]
  - SPUTUM DISCOLOURED [None]
